FAERS Safety Report 6578381-2 (Version None)
Quarter: 2010Q1

REPORT INFORMATION
  Report Type: 
  Country: None (occurrence: None)
  Receive Date: 20100211
  Receipt Date: 20100205
  Transmission Date: 20100710
  Serious: Yes (Other)
  Sender: FDA-Public Use
  Company Number: DE-PFIZER INC-2010000137

PATIENT
  Sex: Male

DRUGS (3)
  1. DETRUSITOL [Suspect]
     Dosage: 1 DF, 1X/DAY
     Route: 048
     Dates: start: 20091216, end: 20091225
  2. DETRUSITOL [Suspect]
     Dosage: 1 DF, 2X/DAY
     Route: 048
     Dates: start: 20091226, end: 20091230
  3. LYRICA [Concomitant]
     Indication: POLYNEUROPATHY
     Dosage: UNK
     Dates: start: 20090601

REACTIONS (7)
  - CEREBRAL DISORDER [None]
  - DIPLOPIA [None]
  - HEADACHE [None]
  - NAUSEA [None]
  - PRURITUS [None]
  - URTICARIA [None]
  - VISION BLURRED [None]
